FAERS Safety Report 7682340-6 (Version None)
Quarter: 2011Q3

REPORT INFORMATION
  Report Type: 
  Country: None (occurrence: None)
  Receive Date: 20110815
  Receipt Date: 20110725
  Transmission Date: 20111222
  Serious: Yes (Hospitalization)
  Sender: FDA-Public Use
  Company Number: US-BAYER-2011-051012

PATIENT
  Age: 30 Year
  Sex: Female
  Weight: 62 kg

DRUGS (1)
  1. MIRENA [Suspect]
     Indication: CONTRACEPTION
     Dosage: UNK
     Route: 015
     Dates: start: 20100330, end: 20110614

REACTIONS (3)
  - ABDOMINAL PAIN [None]
  - ECTOPIC PREGNANCY WITH INTRAUTERINE DEVICE [None]
  - ANTEPARTUM HAEMORRHAGE [None]
